FAERS Safety Report 15729562 (Version 2)
Quarter: 2019Q1

REPORT INFORMATION
  Report Type: Spontaneous
  Country: US (occurrence: US)
  Receive Date: 20181217
  Receipt Date: 20190117
  Transmission Date: 20190417
  Serious: Yes (Hospitalization, Other)
  Sender: FDA-Public Use
  Company Number: US-GLAXOSMITHKLINE-US2018GSK226173

PATIENT
  Sex: Male

DRUGS (6)
  1. LAMICTAL [Suspect]
     Active Substance: LAMOTRIGINE
     Indication: JUVENILE MYOCLONIC EPILEPSY
     Dosage: 100 MG, UNK
     Route: 048
     Dates: start: 20170112, end: 20170215
  2. LAMOTRIGINE TABLET [Suspect]
     Active Substance: LAMOTRIGINE
     Dosage: 50 MG, BID(ONE HALF OF 100MG TABLET)
     Route: 048
  3. LAMICTAL [Suspect]
     Active Substance: LAMOTRIGINE
     Indication: SEIZURE
  4. LAMOTRIGINE TABLET [Suspect]
     Active Substance: LAMOTRIGINE
     Dosage: 50 MG, QD(ONE HALF OF 100MG TABLET)
     Route: 048
  5. LAMOTRIGINE TABLET [Suspect]
     Active Substance: LAMOTRIGINE
     Indication: PRODUCT USED FOR UNKNOWN INDICATION
     Dosage: 25 MG, QD(ONE FOURTH OF 100MG TABLET)
     Route: 048
  6. LAMOTRIGINE TABLET [Suspect]
     Active Substance: LAMOTRIGINE
     Dosage: 100 MG, BID
     Route: 048

REACTIONS (17)
  - Chapped lips [Unknown]
  - Oral mucosal exfoliation [Unknown]
  - Rash generalised [Unknown]
  - Peripheral swelling [Unknown]
  - Swelling face [Unknown]
  - Conjunctivitis [Unknown]
  - Lymphadenitis [Unknown]
  - Nasal oedema [Unknown]
  - Lip swelling [Unknown]
  - Rash papular [Unknown]
  - Pharyngeal erythema [Unknown]
  - Lip exfoliation [Unknown]
  - Genital ulceration [Unknown]
  - Stevens-Johnson syndrome [Unknown]
  - Hypersensitivity [Unknown]
  - Oropharyngeal pain [Unknown]
  - Ocular hyperaemia [Unknown]
